FAERS Safety Report 21316649 (Version 2)
Quarter: 2022Q3

REPORT INFORMATION
  Report Type: Spontaneous
  Country: US (occurrence: US)
  Receive Date: 20220911
  Receipt Date: 20220923
  Transmission Date: 20221027
  Serious: No
  Sender: FDA-Public Use
  Company Number: US-SA-SAC20220818000191

PATIENT
  Age: 55 Year
  Sex: Male

DRUGS (1)
  1. DUPIXENT [Suspect]
     Active Substance: DUPILUMAB
     Indication: Dermatitis atopic
     Dosage: 300MG,OTHER
     Route: 058
     Dates: start: 202206

REACTIONS (5)
  - Eye swelling [Unknown]
  - Ocular hyperaemia [Unknown]
  - Eye discharge [Unknown]
  - Eye pruritus [Unknown]
  - Eye inflammation [Unknown]

NARRATIVE: CASE EVENT DATE: 20220812
